FAERS Safety Report 4837865-5 (Version None)
Quarter: 2005Q4

REPORT INFORMATION
  Report Type: 
  Country: None (occurrence: None)
  Receive Date: 20051024
  Receipt Date: 20050718
  Transmission Date: 20060501
  Serious: No
  Sender: FDA-Public Use
  Company Number: 214123

PATIENT
  Age: 42 Year
  Sex: Female
  Weight: 68.9 kg

DRUGS (8)
  1. XOLAIR [Suspect]
     Indication: ASTHMA
     Dosage: 225 MG, Q2W, SUBCUTANEOUS
     Route: 058
     Dates: start: 20050318, end: 20050603
  2. PROVENTIL (ALBUTEROL, ALBUTEROL SULFATE) [Concomitant]
  3. ADVAIR (SALMETEROL XINAFOATE, FLUTICASONE PROPIONATE) [Concomitant]
  4. BENADRYL [Concomitant]
  5. PHENERGAN [Concomitant]
  6. SEMPREX-D (ACRIVASTINE, PSEUDOEPHEDRINE HYDROCHLORIDE) [Concomitant]
  7. MOTRIN [Concomitant]
  8. KENALOG (TRIMACINOLONE ACETONIDE) [Concomitant]

REACTIONS (3)
  - BONE PAIN [None]
  - EAR PAIN [None]
  - HEADACHE [None]
